FAERS Safety Report 16130478 (Version 3)
Quarter: 2019Q4

REPORT INFORMATION
  Report Type: Spontaneous
  Country: US (occurrence: US)
  Receive Date: 20190328
  Receipt Date: 20191127
  Transmission Date: 20200122
  Serious: Yes (Other)
  Sender: FDA-Public Use
  Company Number: US-GLAXOSMITHKLINE-US2019GSK055071

PATIENT
  Sex: Female

DRUGS (2)
  1. OMEPRAZOLE. [Suspect]
     Active Substance: OMEPRAZOLE
     Indication: GASTROOESOPHAGEAL REFLUX DISEASE
     Dosage: 40 MG, QD
     Route: 048
  2. PREVACID [Suspect]
     Active Substance: LANSOPRAZOLE
     Indication: GASTROOESOPHAGEAL REFLUX DISEASE
     Dosage: 15 MG, UNK
     Route: 065

REACTIONS (17)
  - Kidney enlargement [Unknown]
  - End stage renal disease [Unknown]
  - Papillary renal cell carcinoma [Unknown]
  - Renal transplant [Unknown]
  - Renal cancer [Unknown]
  - Renal cyst [Unknown]
  - Peritoneal dialysis [Unknown]
  - Dialysis [Unknown]
  - Nocturia [Unknown]
  - Nephrogenic anaemia [Unknown]
  - Polyuria [Unknown]
  - Chronic kidney disease [Unknown]
  - Acute kidney injury [Unknown]
  - Renal failure [Unknown]
  - Haematuria [Unknown]
  - Nephrectomy [Unknown]
  - Renal impairment [Unknown]
